FAERS Safety Report 9536374 (Version 3)
Quarter: 2013Q4

REPORT INFORMATION
  Report Type: Spontaneous
  Country: JP (occurrence: JP)
  Receive Date: 20130919
  Receipt Date: 20131105
  Transmission Date: 20140711
  Serious: Yes (Death, Hospitalization)
  Sender: FDA-Public Use
  Company Number: JP-BAYER-2013-074186

PATIENT
  Age: 71 Year
  Sex: Male
  Weight: 54 kg

DRUGS (20)
  1. NEXAVAR [Suspect]
     Indication: HEPATOCELLULAR CARCINOMA
     Dosage: DAILY DOSE 800 MG
     Route: 048
     Dates: start: 20130528, end: 20130706
  2. NEXAVAR [Suspect]
     Indication: HEPATOCELLULAR CARCINOMA
     Dosage: DAILY DOSE 800 MG
     Route: 048
     Dates: start: 2013
  3. CADUET [Concomitant]
     Dosage: 1 DF, OM
     Route: 048
     Dates: start: 20130611, end: 20130727
  4. AMLODIN [Concomitant]
     Dosage: DAILY DOSE 5 MG
     Route: 048
  5. LIPITOR [Concomitant]
     Dosage: DAILY DOSE 10 MG
     Route: 048
  6. LOSARTAN POTASSIUM [Concomitant]
     Dosage: 50 MG, OM
     Route: 048
     Dates: start: 20130611, end: 20130727
  7. DIOVAN [Concomitant]
     Dosage: UNK
     Route: 048
  8. JANUVIA [Concomitant]
     Dosage: 50 MG, OM
     Route: 048
     Dates: start: 20130611, end: 20130727
  9. METFORMIN HYDROCHLORIDE [Concomitant]
     Dosage: DAILY DOSE 1000 MG
     Route: 048
  10. GLIMEPIRIDE [Concomitant]
     Dosage: DAILY DOSE 1 MG
     Route: 048
  11. TRAMAL [Concomitant]
     Dosage: 25 MG, QID
     Route: 048
  12. TRAMAL [Concomitant]
     Dosage: 25 MG, PRN
     Route: 048
  13. TRAMAL [Concomitant]
     Dosage: 25 MG, PRN
     Route: 048
  14. AMOBAN [Concomitant]
     Dosage: 7.5 MG, HS
     Route: 048
     Dates: start: 20130611, end: 20130615
  15. MYSLEE [Concomitant]
     Dosage: DAILY DOSE 5 MG
     Route: 048
  16. LOXOPROFEN SODIUM [Concomitant]
     Dosage: DAILY DOSE 3 DF
     Route: 048
     Dates: start: 20130611, end: 20130611
  17. CONFATANIN [Concomitant]
     Dosage: UNK
     Route: 048
  18. MUCOSTA [Concomitant]
     Dosage: DAILY DOSE 3 DF
     Route: 048
     Dates: start: 20130611, end: 20130611
  19. AMARYL [Concomitant]
     Dosage: 1 MG, BID
     Route: 048
  20. GLACTIV [Concomitant]
     Dosage: UNK
     Route: 048

REACTIONS (4)
  - Hepatocellular carcinoma [Fatal]
  - Decreased appetite [Recovered/Resolved]
  - Dysphonia [Unknown]
  - Rash [Unknown]
